FAERS Safety Report 19647646 (Version 2)
Quarter: 2023Q2

REPORT INFORMATION
  Report Type: Report from Study
  Country: AU (occurrence: AU)
  Receive Date: 20210802
  Receipt Date: 20230424
  Transmission Date: 20230721
  Serious: Yes (Hospitalization)
  Sender: FDA-Public Use
  Company Number: AU-PFIZER INC-202100952162

PATIENT
  Age: 63 Year
  Sex: Female
  Weight: 58.4 kg

DRUGS (3)
  1. CARBOPLATIN [Suspect]
     Active Substance: CARBOPLATIN
     Indication: Anal cancer
     Dosage: 480 MG, Q4W
     Route: 042
     Dates: start: 20210113
  2. PACLITAXEL [Suspect]
     Active Substance: PACLITAXEL
     Indication: Anal cancer
     Dosage: 135 MG, CYCLIC(DAYS 1, 8 AND 15 OF EACH 28-DAY CYCLE)
     Route: 042
     Dates: start: 20210113
  3. INVESTIGATIONAL PRODUCT [Suspect]
     Active Substance: INVESTIGATIONAL PRODUCT
     Indication: Anal cancer
     Dosage: 500 MG, EVERY 4 WEEKS
     Dates: start: 20210113

REACTIONS (1)
  - Pseudomonas infection [Recovered/Resolved]

NARRATIVE: CASE EVENT DATE: 20210125
